FAERS Safety Report 4295742-5 (Version None)
Quarter: 2004Q1

REPORT INFORMATION
  Report Type: 
  Country: None (occurrence: None)
  Receive Date: 20040216
  Receipt Date: 20031024
  Transmission Date: 20041129
  Serious: Yes (Other)
  Sender: FDA-Public Use
  Company Number: US-GLAXOSMITHKLINE-A0431539A

PATIENT
  Age: 52 Year
  Sex: Male

DRUGS (2)
  1. LAMICTAL [Suspect]
     Indication: BIPOLAR DISORDER
     Dosage: 100MG TWICE PER DAY
     Route: 048
     Dates: start: 20021204, end: 20031022
  2. NO CONCURRENT MEDICATION [Concomitant]

REACTIONS (1)
  - STEVENS-JOHNSON SYNDROME [None]
